FAERS Safety Report 5262666-6 (Version None)
Quarter: 2007Q1

REPORT INFORMATION
  Report Type: 
  Country: None (occurrence: None)
  Receive Date: 20070312
  Receipt Date: 20070302
  Transmission Date: 20070707
  Serious: Yes (Disabling)
  Sender: FDA-Public Use
  Company Number: 2007AP01411

PATIENT
  Age: 702 Month
  Sex: Female
  Weight: 75 kg

DRUGS (3)
  1. ARIMIDEX [Suspect]
     Indication: BREAST CANCER
     Route: 048
     Dates: start: 20060701
  2. AMIZIDE [Concomitant]
     Indication: BLOOD PRESSURE
     Route: 048
     Dates: start: 19900101, end: 20070301
  3. ATENOLOL [Concomitant]
     Route: 048
     Dates: start: 19900101, end: 20070301

REACTIONS (1)
  - BLISTER [None]
